FAERS Safety Report 4940029-8 (Version None)
Quarter: 2006Q1

REPORT INFORMATION
  Report Type: 
  Country: None (occurrence: None)
  Receive Date: 20060310
  Receipt Date: 20060126
  Transmission Date: 20060701
  Serious: Yes (Hospitalization, Other)
  Sender: FDA-Public Use
  Company Number: JP-BRISTOL-MYERS SQUIBB COMPANY-13260302

PATIENT
  Age: 76 Year
  Sex: Male

DRUGS (6)
  1. TAXOL [Suspect]
     Indication: LUNG NEOPLASM MALIGNANT
     Route: 042
     Dates: start: 20050411, end: 20050411
  2. PARAPLATIN [Suspect]
     Indication: LUNG NEOPLASM MALIGNANT
     Route: 042
     Dates: start: 20050411, end: 20050411
  3. GRANISETRON HCL [Concomitant]
     Route: 042
  4. RANITIDINE HCL [Concomitant]
     Route: 042
  5. DEXAMETHASONE SODIUM PHOSPHATE [Concomitant]
     Route: 042
  6. DIPHENHYDRAMINE HCL [Concomitant]
     Route: 048
     Dates: start: 20050307, end: 20050411

REACTIONS (5)
  - ANAEMIA [None]
  - BRONCHIAL FISTULA [None]
  - PLEURAL EFFUSION [None]
  - PYREXIA [None]
  - WHITE BLOOD CELL COUNT DECREASED [None]
